FAERS Safety Report 20956154 (Version 1)
Quarter: 2022Q2

REPORT INFORMATION
  Report Type: Spontaneous
  Country: SI (occurrence: SI)
  Receive Date: 20220614
  Receipt Date: 20220614
  Transmission Date: 20220721
  Serious: Yes (Other)
  Sender: FDA-Public Use
  Company Number: SI-MYLANLABS-2022M1044756

PATIENT
  Age: 36 Year
  Sex: Female

DRUGS (28)
  1. VANCOMYCIN [Suspect]
     Active Substance: VANCOMYCIN
     Indication: Plasma cell mastitis
     Dosage: UNK
  2. VANCOMYCIN [Suspect]
     Active Substance: VANCOMYCIN
     Indication: Mastitis bacterial
  3. VANCOMYCIN [Suspect]
     Active Substance: VANCOMYCIN
     Indication: Corynebacterium infection
  4. AZITHROMYCIN [Suspect]
     Active Substance: AZITHROMYCIN
     Indication: Plasma cell mastitis
     Dosage: UNK
  5. AZITHROMYCIN [Suspect]
     Active Substance: AZITHROMYCIN
     Indication: Mastitis bacterial
  6. AZITHROMYCIN [Suspect]
     Active Substance: AZITHROMYCIN
     Indication: Corynebacterium infection
  7. CLINDAMYCIN [Suspect]
     Active Substance: CLINDAMYCIN
     Indication: Plasma cell mastitis
     Dosage: UNK
  8. CLINDAMYCIN [Suspect]
     Active Substance: CLINDAMYCIN
     Indication: Mastitis bacterial
  9. CLINDAMYCIN [Suspect]
     Active Substance: CLINDAMYCIN
     Indication: Corynebacterium infection
  10. CIPROFLOXACIN [Suspect]
     Active Substance: CIPROFLOXACIN
     Indication: Plasma cell mastitis
     Dosage: UNK
  11. CIPROFLOXACIN [Suspect]
     Active Substance: CIPROFLOXACIN
     Indication: Mastitis bacterial
  12. CIPROFLOXACIN [Suspect]
     Active Substance: CIPROFLOXACIN
     Indication: Corynebacterium infection
  13. TEICOPLANIN [Suspect]
     Active Substance: TEICOPLANIN
     Indication: Plasma cell mastitis
     Dosage: UNK
  14. TEICOPLANIN [Suspect]
     Active Substance: TEICOPLANIN
     Indication: Mastitis bacterial
  15. TEICOPLANIN [Suspect]
     Active Substance: TEICOPLANIN
     Indication: Corynebacterium infection
  16. DEXAMETHASONE [Suspect]
     Active Substance: DEXAMETHASONE
     Indication: Plasma cell mastitis
     Dosage: 8 MILLIGRAM, QD, ORAL DEXAMETHASONE 8 MG DAILY SCHEDULED FOR 1 MONTH
     Route: 048
  17. DEXAMETHASONE [Suspect]
     Active Substance: DEXAMETHASONE
     Indication: Mastitis bacterial
  18. DEXAMETHASONE [Suspect]
     Active Substance: DEXAMETHASONE
     Indication: Corynebacterium infection
  19. METHOTREXATE [Suspect]
     Active Substance: METHOTREXATE
     Indication: Plasma cell mastitis
     Dosage: 10 MILLIGRAM, QW, SCHEDULED FOR 2.5 MONTHS
  20. METHOTREXATE [Suspect]
     Active Substance: METHOTREXATE
     Indication: Mastitis bacterial
  21. METHOTREXATE [Suspect]
     Active Substance: METHOTREXATE
     Indication: Corynebacterium infection
  22. FOLIC ACID [Suspect]
     Active Substance: FOLIC ACID
     Indication: Plasma cell mastitis
     Dosage: 5 MILLIGRAM, SCHEDULED FOR 2.5 MONTHS
  23. FOLIC ACID [Suspect]
     Active Substance: FOLIC ACID
     Indication: Mastitis bacterial
  24. FOLIC ACID [Suspect]
     Active Substance: FOLIC ACID
     Indication: Corynebacterium infection
  25. ALPRAZOLAM [Concomitant]
     Active Substance: ALPRAZOLAM
     Indication: Panic disorder
     Dosage: UNK
  26. PAROXETINE [Concomitant]
     Active Substance: PAROXETINE
     Indication: Panic disorder
     Dosage: UNK
  27. HYDROCORTISONE [Concomitant]
     Active Substance: HYDROCORTISONE
     Indication: Cushing^s syndrome
     Dosage: UNK
  28. HYDROCORTISONE [Concomitant]
     Active Substance: HYDROCORTISONE
     Indication: Adrenal insufficiency

REACTIONS (2)
  - Drug ineffective for unapproved indication [Unknown]
  - Off label use [Unknown]
